FAERS Safety Report 9187477 (Version 3)
Quarter: 2013Q3

REPORT INFORMATION
  Report Type: Spontaneous
  Country: JP (occurrence: JP)
  Receive Date: 20130325
  Receipt Date: 20130802
  Transmission Date: 20140515
  Serious: Yes (Other)
  Sender: FDA-Public Use
  Company Number: JP-UCBSA-081391

PATIENT
  Sex: Female

DRUGS (9)
  1. E KEPPRA [Suspect]
     Indication: COMPLEX PARTIAL SEIZURES
     Route: 048
     Dates: start: 20111207, end: 20120103
  2. E KEPPRA [Suspect]
     Indication: COMPLEX PARTIAL SEIZURES
     Dosage: DIVIDED IN TO 2 DOSES AT MORNING AND EVENING
     Route: 048
     Dates: start: 20120104, end: 20120205
  3. E KEPPRA [Suspect]
     Indication: COMPLEX PARTIAL SEIZURES
     Dosage: DIVIDED IN TO 2 DOSES AT MORNING AND EVENING
     Route: 048
     Dates: start: 20120206, end: 20130209
  4. E KEPPRA [Suspect]
     Indication: COMPLEX PARTIAL SEIZURES
     Dosage: DIVIDED IN TO 2 DOSES AT MORNING AND EVENING
     Route: 048
     Dates: start: 20120210, end: 2013
  5. EXCEGRAN [Concomitant]
     Indication: COMPLEX PARTIAL SEIZURES
     Dosage: DAILY DOSE: 200 MG
     Route: 048
     Dates: end: 20111002
  6. EXCEGRAN [Concomitant]
     Indication: COMPLEX PARTIAL SEIZURES
     Dosage: DAILY DOSE: 300 MG
     Route: 048
     Dates: start: 20111003, end: 20111206
  7. EXCEGRAN [Concomitant]
     Indication: COMPLEX PARTIAL SEIZURES
     Dosage: DAILY DOSE: 200 MG
     Route: 048
     Dates: start: 20111207, end: 20120103
  8. EXCEGRAN [Concomitant]
     Indication: COMPLEX PARTIAL SEIZURES
     Dosage: DAILY DOSE: 100 MG
     Route: 048
     Dates: start: 20120104, end: 20120206
  9. MYSTAN [Concomitant]
     Indication: COMPLEX PARTIAL SEIZURES
     Dosage: DOSE: 10 MG
     Route: 048
     Dates: start: 20111207

REACTIONS (2)
  - Pancytopenia [Not Recovered/Not Resolved]
  - Somnolence [Recovered/Resolved]
